FAERS Safety Report 23968483 (Version 14)
Quarter: 2025Q3

REPORT INFORMATION
  Report Type: Spontaneous
  Country: US (occurrence: US)
  Receive Date: 20240612
  Receipt Date: 20250929
  Transmission Date: 20251020
  Serious: No
  Sender: BRISTOL-MYERS SQUIBB COMPANY
  Company Number: US-BRISTOL-MYERS SQUIBB COMPANY-2024-094286

PATIENT
  Age: 74 Year
  Sex: Male

DRUGS (5)
  1. POMALYST [Suspect]
     Active Substance: POMALIDOMIDE
     Indication: Plasma cell myeloma
     Dosage: DAILY FOR 21 DAYS ON FOLLOWED BY 7 DAYS OFF
  2. POMALYST [Suspect]
     Active Substance: POMALIDOMIDE
     Dates: start: 20240522
  3. POMALYST [Suspect]
     Active Substance: POMALIDOMIDE
  4. ALLEGRA [Suspect]
     Active Substance: FEXOFENADINE HYDROCHLORIDE
     Indication: Rash
  5. MIRALAX [Suspect]
     Active Substance: POLYETHYLENE GLYCOL 3350
     Indication: Constipation

REACTIONS (8)
  - Hypersensitivity [Unknown]
  - Peripheral swelling [Unknown]
  - Rash [Recovered/Resolved]
  - Pruritus [Unknown]
  - Constipation [Unknown]
  - Diarrhoea [Unknown]
  - Joint swelling [Unknown]
  - Varicose vein [Unknown]

NARRATIVE: CASE EVENT DATE: 20250501
